FAERS Safety Report 23669494 (Version 1)
Quarter: 2024Q1

REPORT INFORMATION
  Report Type: Spontaneous
  Country: GB (occurrence: GB)
  Receive Date: 20240325
  Receipt Date: 20240325
  Transmission Date: 20240410
  Serious: Yes (Life-Threatening, Disabling)
  Sender: FDA-Public Use
  Company Number: None

PATIENT
  Age: 65 Year
  Sex: Male
  Weight: 80 kg

DRUGS (2)
  1. XARELTO [Suspect]
     Active Substance: RIVAROXABAN
     Indication: Anticoagulant therapy
     Dosage: UNK
     Route: 048
     Dates: start: 20240108
  2. XARELTO [Suspect]
     Active Substance: RIVAROXABAN
     Indication: Adverse drug reaction
     Dosage: UNK
     Route: 048
     Dates: start: 20240108

REACTIONS (2)
  - Cerebral haemorrhage [Recovered/Resolved with Sequelae]
  - Mechanical ventilation [Recovering/Resolving]

NARRATIVE: CASE EVENT DATE: 20240117
